FAERS Safety Report 26162125 (Version 1)
Quarter: 2025Q4

REPORT INFORMATION
  Report Type: Spontaneous
  Country: GB (occurrence: GB)
  Receive Date: 20251216
  Receipt Date: 20251216
  Transmission Date: 20260117
  Serious: Yes (Other)
  Sender: TEVA
  Company Number: None

PATIENT
  Age: 59 Year
  Sex: Male

DRUGS (17)
  1. WARFARIN [Suspect]
     Active Substance: WARFARIN
     Indication: Product used for unknown indication
     Dosage: TAKE AS INSTRUCTED BY ANTICOAGULANT CLINIC - 5MG M/W/F AND 6MG TUE,THU,SAT,SUN - SUSPENDED
     Route: 065
  2. FUROSEMIDE [Concomitant]
     Active Substance: FUROSEMIDE
     Indication: Product used for unknown indication
     Dosage: TWO TO BE TAKEN EACH MORNING AND ONE TO BE TAKEN AT?LUNCHTIME Y - SUSPENDED, HYPOTENSION
  3. ENSURE [Concomitant]
     Active Substance: AMINO ACIDS\DEXTROSE\ELECTROLYTES NOS\SOYBEAN OIL\VITAMINS
     Indication: Product used for unknown indication
     Dosage: MILKSHAKE STYLE LIQUID BANANA ONE TO BE TAKEN EACH DAY Y
  4. BECLOMETHASONE DIPROPIONATE\FORMOTEROL FUMARATE\GLYCOPYRROLATE [Concomitant]
     Active Substance: BECLOMETHASONE DIPROPIONATE\FORMOTEROL FUMARATE\GLYCOPYRROLATE
     Indication: Product used for unknown indication
     Dosage: INHALE TWO PUFFS TWICE A DAY Y,172 / 5 / 9 MICROGRAMS / DOSE INHALER
  5. ALBUTEROL [Concomitant]
     Active Substance: ALBUTEROL
     Indication: Product used for unknown indication
     Dosage: 100 MICROGRAMS / DOSE INHALER CFC FREE ONE OR TWO PUFFS TO BE INHALED?UP TO FOUR TIMES A DAY Y
     Route: 065
  6. METHADONE [Concomitant]
     Active Substance: METHADONE HYDROCHLORIDE
     Indication: Product used for unknown indication
     Dosage: ORAL SOLUTION, 20MG BD. - 40MLS ONCE DAILY, LAST SCRIPT STARTED YESTERDAY.?PICKS UP THURSDAY 40ML...
     Route: 065
  7. SIMVASTATIN [Concomitant]
     Active Substance: SIMVASTATIN
     Indication: Product used for unknown indication
     Dosage: SUSPENDED
     Route: 065
  8. FLEXITOL [Concomitant]
     Indication: Product used for unknown indication
     Dosage: 10% UREA CREAM USE AS DIRECTED BY PODIATRIST Y BD
     Route: 065
  9. BISOPROLOL [Concomitant]
     Active Substance: BISOPROLOL
     Indication: Product used for unknown indication
     Route: 065
  10. ALBUTEROL [Concomitant]
     Active Substance: ALBUTEROL
     Indication: Product used for unknown indication
     Dosage: USE AS DIRECTED WHEN REQUIRED UPTO FOUR TIMES DAILY, 2.5 MG / 2.5 ML NEBULISER LIQUID UNIT DOSE V...
     Route: 065
  11. PREGABALIN [Concomitant]
     Active Substance: PREGABALIN
     Indication: Product used for unknown indication
     Route: 065
  12. DAPAGLIFLOZIN [Concomitant]
     Active Substance: DAPAGLIFLOZIN
     Indication: Product used for unknown indication
     Dosage: STOPPED PREVIOUS?ADMISSION
     Route: 065
  13. E 45 cream [Concomitant]
     Indication: Product used for unknown indication
     Route: 065
  14. CARBOCYSTEINE [Concomitant]
     Active Substance: CARBOCYSTEINE
     Indication: Product used for unknown indication
     Dosage: 375 MG CAPSULES TWO TO BE TAKEN THREE TIMES A DAY Y
     Route: 065
  15. NICOTINE [Concomitant]
     Active Substance: NICOTINE
     Indication: Product used for unknown indication
     Dosage: 15MG/DOSE INHALATOR, 1 PUFF PRN.
     Route: 065
  16. NICOTINE [Concomitant]
     Active Substance: NICOTINE
     Indication: Product used for unknown indication
     Dosage: 21MG/24HRS PATCH
     Route: 065
  17. SPIRONOLACTONE [Concomitant]
     Active Substance: SPIRONOLACTONE
     Indication: Product used for unknown indication
     Dosage: SUSPENDED
     Route: 065

REACTIONS (1)
  - Thrombosis [Unknown]
